FAERS Safety Report 24637936 (Version 2)
Quarter: 2025Q1

REPORT INFORMATION
  Report Type: Spontaneous
  Country: US (occurrence: US)
  Receive Date: 20241119
  Receipt Date: 20250116
  Transmission Date: 20250409
  Serious: Yes (Other)
  Sender: BIOGEN
  Company Number: US-BIOGEN-2024BI01289705

PATIENT
  Age: 34 Year

DRUGS (1)
  1. QALSODY [Suspect]
     Active Substance: TOFERSEN
     Indication: Amyotrophic lateral sclerosis
     Route: 050

REACTIONS (2)
  - Noninfectious myelitis [Unknown]
  - Back pain [Unknown]

NARRATIVE: CASE EVENT DATE: 20241201
